FAERS Safety Report 5228343-2 (Version None)
Quarter: 2007Q1

REPORT INFORMATION
  Report Type: 
  Country: None (occurrence: None)
  Receive Date: 20070131
  Receipt Date: 20070131
  Transmission Date: 20070707
  Serious: Yes (Disabling)
  Sender: FDA-Public Use
  Company Number: None

PATIENT
  Age: 66 Year
  Sex: Female
  Weight: 56.8 kg

DRUGS (6)
  1. REMICADE [Suspect]
     Indication: CROHN'S DISEASE
     Dosage: 600 MG IV Q 4 WKS
     Route: 042
     Dates: start: 20000214, end: 20060717
  2. ETODOLAC [Concomitant]
  3. TOPROL-XL [Concomitant]
  4. CLONIDINE [Concomitant]
  5. IMURAN [Concomitant]
  6. SONESTIN [Concomitant]

REACTIONS (7)
  - DYSARTHRIA [None]
  - DYSPHAGIA [None]
  - FATIGUE [None]
  - FOREIGN BODY TRAUMA [None]
  - GAIT DISTURBANCE [None]
  - SENSATION OF HEAVINESS [None]
  - VISUAL FIELD DEFECT [None]
